FAERS Safety Report 16804855 (Version 1)
Quarter: 2019Q3

REPORT INFORMATION
  Report Type: Spontaneous
  Country: DE (occurrence: DE)
  Receive Date: 20190913
  Receipt Date: 20190913
  Transmission Date: 20191005
  Serious: Yes (Life-Threatening, Hospitalization, Other)
  Sender: FDA-Public Use
  Company Number: DE-TEVA-2019-DE-1103715

PATIENT
  Age: 76 Year
  Sex: Male
  Weight: 66 kg

DRUGS (2)
  1. ASPIRIN. [Suspect]
     Active Substance: ASPIRIN
     Indication: ACUTE MYOCARDIAL INFARCTION
     Dosage: 1 X 100MG
     Route: 048
     Dates: end: 20190808
  2. ANAGRELIDE. [Suspect]
     Active Substance: ANAGRELIDE HYDROCHLORIDE
     Indication: THROMBOCYTOSIS
     Dosage: 2 X 0.5MG,  1MG
     Route: 048
     Dates: end: 20190808

REACTIONS (2)
  - Post procedural haemorrhage [Recovering/Resolving]
  - Haemorrhagic diathesis [Recovering/Resolving]

NARRATIVE: CASE EVENT DATE: 20190809
